FAERS Safety Report 4452054-4 (Version None)
Quarter: 2004Q3

REPORT INFORMATION
  Report Type: 
  Country: None (occurrence: None)
  Receive Date: 20040915
  Receipt Date: 20040915
  Transmission Date: 20050211
  Serious: No
  Sender: FDA-Public Use
  Company Number: None

PATIENT
  Age: 29 Year
  Sex: Female
  Weight: 102 kg

DRUGS (8)
  1. L-ASPARAGINASE 10;000 UNITS IN D 5 W 100 MG IV/ 3D [Suspect]
     Indication: ACUTE LYMPHOCYTIC LEUKAEMIA
     Dosage: SEE IMAGE
  2. METHOTREXATE [Concomitant]
  3. PANTOPRAZOLE [Concomitant]
  4. LORAZEPAM [Concomitant]
  5. M.V.I. [Concomitant]
  6. ORTHO CYCLEN-28 [Concomitant]
  7. ACYCLOVIR [Concomitant]
  8. FLUCONAZOLE [Concomitant]

REACTIONS (2)
  - PRURITUS [None]
  - URTICARIA [None]
